FAERS Safety Report 13703543 (Version 1)
Quarter: 2017Q2

REPORT INFORMATION
  Report Type: Spontaneous
  Country: US (occurrence: US)
  Receive Date: 20170629
  Receipt Date: 20170629
  Transmission Date: 20170830
  Serious: Yes (Hospitalization)
  Sender: FDA-Public Use
  Company Number: US-ACTELION-A-NJ2017-155813

PATIENT
  Age: 56 Year
  Sex: Female

DRUGS (15)
  1. PERCOCET [Concomitant]
     Active Substance: ACETAMINOPHEN\OXYCODONE HYDROCHLORIDE
  2. ZOFRAN [Concomitant]
     Active Substance: ONDANSETRON HYDROCHLORIDE
  3. NEXIUM [Concomitant]
     Active Substance: ESOMEPRAZOLE MAGNESIUM
  4. IRON [Concomitant]
     Active Substance: IRON
  5. LIPITOR [Concomitant]
     Active Substance: ATORVASTATIN CALCIUM
  6. NORCO [Concomitant]
     Active Substance: ACETAMINOPHEN\HYDROCODONE BITARTRATE
  7. TRACLEER [Suspect]
     Active Substance: BOSENTAN
     Indication: PULMONARY ARTERIAL HYPERTENSION
     Dosage: 125 MG, UNK
     Route: 048
     Dates: start: 20111028
  8. ZETIA [Concomitant]
     Active Substance: EZETIMIBE
  9. ALDACTONE [Concomitant]
     Active Substance: SPIRONOLACTONE
  10. VELETRI [Suspect]
     Active Substance: EPOPROSTENOL
     Indication: PULMONARY ARTERIAL HYPERTENSION
     Dosage: 59 NG/KG, PER MIN
     Route: 042
     Dates: start: 20140623
  11. POTASSIUM [Concomitant]
     Active Substance: POTASSIUM
  12. TOPROL XL [Concomitant]
     Active Substance: METOPROLOL SUCCINATE
  13. COUMADIN [Concomitant]
     Active Substance: WARFARIN SODIUM
  14. ZOLOFT [Concomitant]
     Active Substance: SERTRALINE HYDROCHLORIDE
  15. DEMADEX [Concomitant]
     Active Substance: TORSEMIDE

REACTIONS (1)
  - Fluid overload [Not Recovered/Not Resolved]

NARRATIVE: CASE EVENT DATE: 20170620
